FAERS Safety Report 4575995-6 (Version None)
Quarter: 2005Q1

REPORT INFORMATION
  Report Type: 
  Country: None (occurrence: None)
  Receive Date: 20050204
  Receipt Date: 20050127
  Transmission Date: 20050727
  Serious: Yes (Other)
  Sender: FDA-Public Use
  Company Number: 2005-01-1549

PATIENT
  Age: 69 Year
  Sex: Female

DRUGS (3)
  1. NASONEX [Suspect]
     Indication: NASAL DRYNESS
     Dosage: 1SPRAY/NARE NASAL SPRAY
     Route: 045
     Dates: start: 20050117, end: 20050118
  2. ALDOMET [Concomitant]
  3. LABETALOL HCL [Concomitant]

REACTIONS (4)
  - BLOOD PRESSURE SYSTOLIC INCREASED [None]
  - DRUG INEFFECTIVE [None]
  - MUCOSAL DRYNESS [None]
  - NAUSEA [None]
